FAERS Safety Report 6918153-X (Version None)
Quarter: 2010Q3

REPORT INFORMATION
  Report Type: 
  Country: None (occurrence: None)
  Receive Date: 20100810
  Receipt Date: 20100803
  Transmission Date: 20110219
  Serious: Yes (Hospitalization, Other)
  Sender: FDA-Public Use
  Company Number: US-AMGEN-KDL428887

PATIENT
  Age: 71 Year
  Sex: Male

DRUGS (3)
  1. NPLATE [Suspect]
     Indication: PRODUCT USED FOR UNKNOWN INDICATION
  2. AMINOCAPROIC ACID [Suspect]
  3. METHYLPREDNISOLONE [Concomitant]
     Route: 042

REACTIONS (15)
  - BLINDNESS [None]
  - CHOROIDAL DETACHMENT [None]
  - CONJUNCTIVAL OEDEMA [None]
  - DRUG INTERACTION [None]
  - EYE MOVEMENT DISORDER [None]
  - EYE PAIN [None]
  - HEADACHE [None]
  - INTRAOCULAR PRESSURE INCREASED [None]
  - PERIORBITAL OEDEMA [None]
  - PLATELET COUNT INCREASED [None]
  - PUPILLARY REFLEX IMPAIRED [None]
  - SOMNOLENCE [None]
  - VENOUS THROMBOSIS [None]
  - VISUAL FIELD DEFECT [None]
  - WHITE BLOOD CELL COUNT INCREASED [None]
